FAERS Safety Report 14428789 (Version 1)
Quarter: 2018Q1

REPORT INFORMATION
  Report Type: Spontaneous
  Country: US (occurrence: US)
  Receive Date: 20180123
  Receipt Date: 20180123
  Transmission Date: 20180509
  Serious: Yes (Hospitalization, Disabling)
  Sender: FDA-Public Use
  Company Number: None

PATIENT
  Age: 38 Year
  Sex: Male
  Weight: 109.77 kg

DRUGS (7)
  1. RISPERIDONE. [Suspect]
     Active Substance: RISPERIDONE
     Indication: PERSONALITY DISORDER
     Dosage: 3 MG 30 TABLETS ONCE A DAY BY MOUTH
     Route: 048
     Dates: start: 20171020, end: 20180101
  2. ONE A DAY FOR MEN [Concomitant]
  3. RISPERIDONE. [Suspect]
     Active Substance: RISPERIDONE
     Indication: SCHIZOPHRENIA
     Dosage: 3 MG 30 TABLETS ONCE A DAY BY MOUTH
     Route: 048
     Dates: start: 20171020, end: 20180101
  4. RISPERDINE [Suspect]
     Active Substance: RISPERIDONE
  5. RISPERIDONE. [Suspect]
     Active Substance: RISPERIDONE
     Indication: BIPOLAR DISORDER
     Dosage: 3 MG 30 TABLETS ONCE A DAY BY MOUTH
     Route: 048
     Dates: start: 20171020, end: 20180101
  6. RISPERIDONE. [Suspect]
     Active Substance: RISPERIDONE
     Indication: AUTISM SPECTRUM DISORDER
     Dosage: 3 MG 30 TABLETS ONCE A DAY BY MOUTH
     Route: 048
     Dates: start: 20171020, end: 20180101
  7. RISPERDAL [Suspect]
     Active Substance: RISPERIDONE

REACTIONS (1)
  - Visual impairment [None]

NARRATIVE: CASE EVENT DATE: 20180101
